FAERS Safety Report 5384794-7 (Version None)
Quarter: 2007Q3

REPORT INFORMATION
  Report Type: 
  Country: None (occurrence: None)
  Receive Date: 20070706
  Receipt Date: 20070517
  Transmission Date: 20080115
  Serious: No
  Sender: FDA-Public Use
  Company Number: PHEH2007US07550

PATIENT
  Age: 83 Year
  Sex: Male

DRUGS (10)
  1. TEKTURNA [Suspect]
     Indication: HYPERTENSION
     Dosage: 150 MG, ONCE/SINGLE, ORAL
     Route: 048
     Dates: start: 20070315, end: 20070315
  2. PLAVIX [Concomitant]
  3. ASPIRIN [Concomitant]
  4. GALANTAMINE HYDROBROMIDE [Concomitant]
  5. FUROSEMIDE [Concomitant]
  6. SYNTHROID [Concomitant]
  7. VYTORIN [Concomitant]
  8. BENICAR [Concomitant]
  9. ZOLOFT [Concomitant]
  10. BENADRYL [Concomitant]

REACTIONS (2)
  - PHARYNGEAL OEDEMA [None]
  - THROAT IRRITATION [None]
